FAERS Safety Report 14526917 (Version 1)
Quarter: 2018Q1

REPORT INFORMATION
  Report Type: Spontaneous
  Country: FI (occurrence: FI)
  Receive Date: 20180213
  Receipt Date: 20180213
  Transmission Date: 20180509
  Serious: Yes (Other)
  Sender: FDA-Public Use
  Company Number: FI-TAKEDA-2018TUS003476

PATIENT
  Age: 26 Year
  Sex: Female

DRUGS (2)
  1. BRINTELLIX [Suspect]
     Active Substance: VORTIOXETINE HYDROBROMIDE
     Indication: DEPRESSION
     Dosage: 10 MG, QD
     Route: 048
     Dates: start: 20171112, end: 20171218
  2. YASMINELLE [Interacting]
     Active Substance: DROSPIRENONE
     Indication: CONTRACEPTION
     Dosage: UNK, QD
     Route: 048
     Dates: start: 2009

REACTIONS (3)
  - Menorrhagia [Recovering/Resolving]
  - Unintended pregnancy [Recovering/Resolving]
  - Drug interaction [Recovering/Resolving]

NARRATIVE: CASE EVENT DATE: 20171212
